FAERS Safety Report 20441988 (Version 1)
Quarter: 2022Q1

REPORT INFORMATION
  Report Type: Other
  Country: US (occurrence: None)
  Receive Date: 20220208
  Receipt Date: 20220208
  Transmission Date: 20220423
  Serious: Yes (Death, Hospitalization)
  Sender: FDA-Public Use
  Company Number: US-ROCHE-3016641

PATIENT
  Sex: Female

DRUGS (19)
  1. OCREVUS [Suspect]
     Active Substance: OCRELIZUMAB
     Indication: Relapsing multiple sclerosis
     Dosage: LAST DATE OF TREATMENT: 02/DEC/2019, DATE OF NEXT TREATMENT: 2/JUN/2020, DATE OF SERVICES: 07/JUN/20
     Route: 042
     Dates: start: 20170623, end: 20211207
  2. BACLOFEN [Concomitant]
     Active Substance: BACLOFEN
     Route: 048
     Dates: start: 20190820
  3. DOCUSATE SODIUM [Concomitant]
     Active Substance: DOCUSATE SODIUM
     Route: 048
     Dates: start: 20070910
  4. BISACODYL [Concomitant]
     Active Substance: BISACODYL
     Dates: start: 20070910
  5. CLARITIN [Concomitant]
     Active Substance: LORATADINE
     Route: 048
     Dates: start: 20070910
  6. LEVOTHYROXINE SODIUM [Concomitant]
     Active Substance: LEVOTHYROXINE SODIUM
     Route: 048
     Dates: start: 20160126
  7. VITAMIN C [Concomitant]
     Active Substance: ASCORBIC ACID
  8. OMEGA [Concomitant]
  9. MODAFINIL [Concomitant]
     Active Substance: MODAFINIL
     Route: 048
     Dates: start: 20190827
  10. BRIMONIDINE TARTRATE [Concomitant]
     Active Substance: BRIMONIDINE TARTRATE
  11. RESTASIS [Concomitant]
     Active Substance: CYCLOSPORINE
  12. LORAZEPAM [Concomitant]
     Active Substance: LORAZEPAM
     Route: 048
     Dates: start: 20171218
  13. BUPROPION HYDROCHLORIDE [Concomitant]
     Active Substance: BUPROPION HYDROCHLORIDE
     Route: 048
     Dates: start: 20171218
  14. SENNOSIDES [Concomitant]
     Active Substance: SENNOSIDES
     Route: 048
  15. PAZEO [Concomitant]
     Active Substance: OLOPATADINE HYDROCHLORIDE
  16. BENADRYL ALLERGY [Concomitant]
     Active Substance: DIPHENHYDRAMINE HYDROCHLORIDE
  17. FLAXSEED [Concomitant]
     Active Substance: FLAX SEED
  18. DRAMAMINE [Concomitant]
     Active Substance: DIMENHYDRINATE
  19. ACYCLOVIR [Concomitant]
     Active Substance: ACYCLOVIR
     Route: 048
     Dates: start: 20191209

REACTIONS (2)
  - Death [Fatal]
  - COVID-19 [Unknown]
